FAERS Safety Report 13351320 (Version 2)
Quarter: 2017Q2

REPORT INFORMATION
  Report Type: Spontaneous
  Country: FR (occurrence: FR)
  Receive Date: 20170320
  Receipt Date: 20170411
  Transmission Date: 20170830
  Serious: Yes (Hospitalization)
  Sender: FDA-Public Use
  Company Number: FR-AUROBINDO-AUR-APL-2017-31079

PATIENT
  Age: 77 Year
  Sex: Female

DRUGS (1)
  1. METFORMIN [Suspect]
     Active Substance: METFORMIN HYDROCHLORIDE
     Indication: TYPE 2 DIABETES MELLITUS
     Route: 065

REACTIONS (7)
  - Delirium [Recovering/Resolving]
  - Confusional state [Recovering/Resolving]
  - Acute kidney injury [Recovering/Resolving]
  - Somnolence [Recovering/Resolving]
  - Lactic acidosis [Recovering/Resolving]
  - General physical condition abnormal [Unknown]
  - Vomiting [Recovering/Resolving]
